FAERS Safety Report 6876219-7 (Version None)
Quarter: 2010Q3

REPORT INFORMATION
  Report Type: 
  Country: None (occurrence: None)
  Receive Date: 20100727
  Receipt Date: 20100709
  Transmission Date: 20110219
  Serious: Yes (Death, Hospitalization)
  Sender: FDA-Public Use
  Company Number: A0866989A

PATIENT
  Age: 54 Year
  Sex: Male

DRUGS (1)
  1. AVANDIA [Suspect]
     Dosage: 4MG TWICE PER DAY
     Route: 048
     Dates: start: 20010331, end: 20070530

REACTIONS (7)
  - AMNESIA [None]
  - CEREBROVASCULAR ACCIDENT [None]
  - INFLUENZA [None]
  - PARALYSIS [None]
  - PNEUMONIA STAPHYLOCOCCAL [None]
  - RESPIRATORY FAILURE [None]
  - SEPSIS [None]
